FAERS Safety Report 7239541-0 (Version None)
Quarter: 2011Q1

REPORT INFORMATION
  Report Type: 
  Country: None (occurrence: None)
  Receive Date: 20110121
  Receipt Date: 20100429
  Transmission Date: 20110831
  Serious: No
  Sender: FDA-Public Use
  Company Number: US-PFIZER INC-2010055101

PATIENT
  Sex: Female
  Weight: 54.422 kg

DRUGS (4)
  1. NIFEDIPINE [Suspect]
     Dosage: 30 MG, 1X/DAY
     Route: 048
     Dates: start: 20100101, end: 20100101
  2. NIFEDIPINE [Suspect]
     Indication: HYPERTENSION
     Dosage: 30 MG, 1X/DAY
     Route: 048
     Dates: start: 20080101, end: 20080101
  3. ESTRACE [Concomitant]
     Dosage: UNK
  4. PROCARDIA [Suspect]
     Indication: HYPERTENSION
     Dosage: 30 MG, 1X/DAY
     Route: 048
     Dates: start: 20080101

REACTIONS (3)
  - CHEST PAIN [None]
  - BLOOD CHOLESTEROL INCREASED [None]
  - DRUG HYPERSENSITIVITY [None]
